FAERS Safety Report 8567596-X (Version None)
Quarter: 2012Q3

REPORT INFORMATION
  Report Type: 
  Country: None (occurrence: None)
  Receive Date: 20120803
  Receipt Date: 20120726
  Transmission Date: 20120928
  Serious: Yes (Other)
  Sender: FDA-Public Use
  Company Number: IL-ACTELION-A-CH2012-69304

PATIENT
  Age: 14 Year
  Sex: Female

DRUGS (3)
  1. IMMUNE GLOBULIN NOS [Concomitant]
     Route: 042
  2. SILDENAFIL [Concomitant]
  3. TRACLEER [Suspect]
     Indication: PULMONARY HYPERTENSION
     Dosage: UNK , UNK
     Route: 048

REACTIONS (5)
  - LIPASE INCREASED [None]
  - PULMONARY ARTERIAL PRESSURE INCREASED [None]
  - AMYLASE INCREASED [None]
  - CONDITION AGGRAVATED [None]
  - MYOCARDIAL INFARCTION [None]
